FAERS Safety Report 6919563-7 (Version None)
Quarter: 2010Q3

REPORT INFORMATION
  Report Type: 
  Country: None (occurrence: None)
  Receive Date: 20100809
  Receipt Date: 20100526
  Transmission Date: 20110219
  Serious: Yes (Other)
  Sender: FDA-Public Use
  Company Number: 2010BI026708

PATIENT

DRUGS (2)
  1. ZEVALIN [Suspect]
     Indication: NON-HODGKIN'S LYMPHOMA
     Dosage: 1XL IV
     Route: 042
     Dates: start: 20041209, end: 20041209
  2. RITUXIMAB [Concomitant]

REACTIONS (1)
  - PANCREATIC CARCINOMA [None]
